FAERS Safety Report 10032939 (Version 2)
Quarter: 2014Q1

REPORT INFORMATION
  Report Type: Spontaneous
  Country: JP (occurrence: JP)
  Receive Date: 20140324
  Receipt Date: 20140328
  Transmission Date: 20141002
  Serious: Yes (Life-Threatening, Other)
  Sender: FDA-Public Use
  Company Number: JP-ASTRAZENECA-2014SE19490

PATIENT
  Age: 71 Year
  Sex: Female

DRUGS (2)
  1. XYLOCAINE POLYAMP [Suspect]
     Indication: LOCAL ANAESTHESIA
  2. XYLOCAINE POLYAMP [Suspect]
     Indication: LOCAL ANAESTHESIA

REACTIONS (4)
  - Anaesthetic complication neurological [Recovered/Resolved]
  - Altered state of consciousness [Recovered/Resolved]
  - Respiratory depression [Recovered/Resolved]
  - Ventricular tachycardia [Recovered/Resolved]
